FAERS Safety Report 21036258 (Version 3)
Quarter: 2022Q4

REPORT INFORMATION
  Report Type: Spontaneous
  Country: US (occurrence: US)
  Receive Date: 20220701
  Receipt Date: 20221010
  Transmission Date: 20230112
  Serious: Yes (Other)
  Sender: FDA-Public Use
  Company Number: US-PFIZER INC-PV202200011446

PATIENT
  Age: 58 Year
  Sex: Male

DRUGS (1)
  1. XELJANZ [Suspect]
     Active Substance: TOFACITINIB CITRATE
     Dosage: 10 MG
     Dates: end: 20220901

REACTIONS (6)
  - Diarrhoea haemorrhagic [Unknown]
  - Pneumonia [Unknown]
  - Abdominal pain [Unknown]
  - Muscle spasms [Unknown]
  - Arthralgia [Unknown]
  - Pyrexia [Unknown]
